FAERS Safety Report 5690041-9 (Version None)
Quarter: 2008Q2

REPORT INFORMATION
  Report Type: 
  Country: None (occurrence: None)
  Receive Date: 20080401
  Receipt Date: 20080229
  Transmission Date: 20081010
  Serious: No
  Sender: FDA-Public Use
  Company Number: US-BAYER-200814161NA

PATIENT
  Age: 61 Year
  Sex: Female
  Weight: 104 kg

DRUGS (2)
  1. MAGNEVIST [Suspect]
     Indication: NUCLEAR MAGNETIC RESONANCE IMAGING
     Route: 042
     Dates: start: 20080215, end: 20080215
  2. MAGNEVIST [Suspect]
     Route: 042
     Dates: start: 20080229, end: 20080229

REACTIONS (1)
  - URTICARIA [None]
